FAERS Safety Report 6139436 (Version 4)
Quarter: 2014Q2

REPORT INFORMATION
  Report Type: Spontaneous
  Country: GB (occurrence: GB)
  Receive Date: 20060918
  Receipt Date: 20140425
  Transmission Date: 20141212
  Serious: Yes (Hospitalization, Disabling, Other)
  Sender: FDA-Public Use
  Company Number: PHBS2006GB11287

PATIENT
  Age: 84 Year
  Sex: Male

DRUGS (12)
  1. COMTESS [Suspect]
     Indication: PARKINSON^S DISEASE
     Dosage: 200 MG, QD
     Route: 048
     Dates: start: 20060718
  2. COMTESS [Interacting]
     Dosage: 200 MG, BID
     Route: 048
     Dates: start: 20060719, end: 20060719
  3. COMTESS [Interacting]
     Dosage: 200 MG, TID
     Route: 048
     Dates: start: 20060720, end: 20060720
  4. WARFARIN [Interacting]
  5. MADOPAR [Concomitant]
     Dosage: 525 MG/D
     Route: 048
  6. QUININE SULFATE [Concomitant]
     Dosage: 300 MG, UNK
  7. RAMIPRIL [Concomitant]
     Dosage: 5 MG, UNK
  8. FELODIPINE [Concomitant]
     Dosage: 5 UNK, UNK
  9. AMIODARONE HYDROCHLORIDE [Concomitant]
     Dosage: 200 UNK, UNK
  10. FUROSEMIDE [Concomitant]
     Dosage: 40 UNK, UNK
  11. TADALAFIL [Concomitant]
     Dosage: 20 UNK, UNK
  12. DIGOXIN [Concomitant]
     Dosage: 125 UNK, UNK

REACTIONS (4)
  - International normalised ratio increased [Recovered/Resolved]
  - Rectal haemorrhage [Recovered/Resolved]
  - Contusion [Recovered/Resolved]
  - Drug interaction [Recovered/Resolved]
